FAERS Safety Report 6346835-X (Version None)
Quarter: 2009Q3

REPORT INFORMATION
  Report Type: 
  Country: None (occurrence: None)
  Receive Date: 20090910
  Receipt Date: 20090831
  Transmission Date: 20100115
  Serious: Yes (Hospitalization)
  Sender: FDA-Public Use
  Company Number: US-BIOGENIDEC-2009BI023196

PATIENT
  Age: 40 Year
  Sex: Female

DRUGS (2)
  1. AVONEX [Suspect]
     Indication: MULTIPLE SCLEROSIS
     Route: 030
     Dates: start: 20080225, end: 20080701
  2. AVONEX [Suspect]
     Route: 030
     Dates: start: 20090101

REACTIONS (7)
  - ABDOMINAL PANNICULECTOMY [None]
  - BIOPSY LIVER [None]
  - FEMALE STERILISATION [None]
  - HEPATIC FAILURE [None]
  - IMPAIRED HEALING [None]
  - RENAL FAILURE [None]
  - RESPIRATORY FAILURE [None]
